FAERS Safety Report 8808915 (Version 1)
Quarter: 2012Q4

REPORT INFORMATION
  Report Type: 
  Country: FR (occurrence: FR)
  Receive Date: 20120926
  Receipt Date: 20120926
  Transmission Date: 20130627
  Serious: Yes (Hospitalization)
  Sender: FDA-Public Use
  Company Number: FR-SANOFI-AVENTIS-2012SA069389

PATIENT
  Age: 77 Year
  Sex: Male

DRUGS (10)
  1. LASILIX [Suspect]
     Indication: DRUG USE FOR UNKNOWN INDICATION
     Route: 048
     Dates: start: 201104
  2. LASILIX [Suspect]
     Indication: DRUG USE FOR UNKNOWN INDICATION
     Dosage: reduced doses
     Route: 065
  3. TRIATEC [Suspect]
     Indication: DRUG USE FOR UNKNOWN INDICATION
     Route: 048
     Dates: start: 201104
  4. ALDACTONE [Suspect]
     Indication: DRUG USE FOR UNKNOWN INDICATION
     Route: 048
     Dates: start: 201104
  5. CARDENSIEL [Concomitant]
     Route: 048
  6. ROSUVASTATIN [Concomitant]
     Route: 048
  7. ASPEGIC [Concomitant]
     Route: 048
  8. ALLOPURINOL [Concomitant]
     Route: 048
  9. PREVISCAN [Concomitant]
     Route: 048
  10. DIFFU K [Concomitant]
     Route: 048
     Dates: start: 201104

REACTIONS (2)
  - Hyperkalaemia [Recovered/Resolved]
  - Renal failure acute [Recovering/Resolving]
